FAERS Safety Report 6896800-9 (Version None)
Quarter: 2010Q3

REPORT INFORMATION
  Report Type: 
  Country: None (occurrence: None)
  Receive Date: 20100802
  Receipt Date: 20070307
  Transmission Date: 20110219
  Serious: Yes (Hospitalization, Other)
  Sender: FDA-Public Use
  Company Number: US-PFIZER INC-2007004352

PATIENT
  Age: 53 Year
  Sex: Female
  Weight: 98.9 kg

DRUGS (1)
  1. LYRICA [Suspect]
     Indication: SCIATICA
     Dates: start: 20061001

REACTIONS (6)
  - APHASIA [None]
  - FEELING ABNORMAL [None]
  - MEMORY IMPAIRMENT [None]
  - SPEECH DISORDER [None]
  - SWOLLEN TONGUE [None]
  - WEIGHT INCREASED [None]
